FAERS Safety Report 8530567-3 (Version None)
Quarter: 2012Q3

REPORT INFORMATION
  Report Type: 
  Country: None (occurrence: None)
  Receive Date: 20120723
  Receipt Date: 20120713
  Transmission Date: 20120928
  Serious: Yes (Other)
  Sender: FDA-Public Use
  Company Number: US-ASTRAZENECA-2010SE21187

PATIENT
  Age: 75 Year
  Sex: Female

DRUGS (2)
  1. TOPROL-XL [Suspect]
     Route: 048
     Dates: start: 20091001
  2. CLONODIN [Concomitant]

REACTIONS (22)
  - INTERVERTEBRAL DISC PROTRUSION [None]
  - HEART RATE DECREASED [None]
  - DEPRESSED MOOD [None]
  - FIBROMYALGIA [None]
  - ASTHENIA [None]
  - MOBILITY DECREASED [None]
  - DYSSTASIA [None]
  - FEELING ABNORMAL [None]
  - THERAPEUTIC RESPONSE DECREASED [None]
  - RETCHING [None]
  - PERONEAL MUSCULAR ATROPHY [None]
  - BACK INJURY [None]
  - HYPERTENSION [None]
  - NAUSEA [None]
  - HEADACHE [None]
  - DRUG DOSE OMISSION [None]
  - MALAISE [None]
  - PAIN [None]
  - ACCIDENT AT WORK [None]
  - HEART RATE INCREASED [None]
  - ANGINA PECTORIS [None]
  - CIRCUMSTANCE OR INFORMATION CAPABLE OF LEADING TO MEDICATION ERROR [None]
